FAERS Safety Report 12253601 (Version 1)
Quarter: 2016Q2

REPORT INFORMATION
  Report Type: Spontaneous
  Country: US (occurrence: US)
  Receive Date: 20160411
  Receipt Date: 20160411
  Transmission Date: 20160815
  Serious: Yes (Other)
  Sender: FDA-Public Use
  Company Number: US-FRI-1000083775

PATIENT
  Age: 42 Year
  Sex: Male

DRUGS (11)
  1. METOPROLOL TARTRATE. [Suspect]
     Active Substance: METOPROLOL TARTRATE
     Dosage: 50MG
  2. TRAMADOL. [Suspect]
     Active Substance: TRAMADOL
     Dosage: 400MG
  3. APRISO [Suspect]
     Active Substance: MESALAMINE
     Dosage: 1.5GM
  4. GABAPENTIN. [Suspect]
     Active Substance: GABAPENTIN
     Dosage: 1800MG
  5. ATORVASTATIN [Suspect]
     Active Substance: ATORVASTATIN
     Dosage: 40MG
  6. MONTELUKAST [Suspect]
     Active Substance: MONTELUKAST SODIUM
     Dosage: 10MG
  7. FETZIMA [Suspect]
     Active Substance: LEVOMILNACIPRAN HYDROCHLORIDE
     Dosage: 120MG
  8. OMEPRAZOLE. [Suspect]
     Active Substance: OMEPRAZOLE
     Dosage: 40MG
  9. AMLODIPINE [Suspect]
     Active Substance: AMLODIPINE BESYLATE
     Dosage: 5MG
  10. DIAZEPAM. [Suspect]
     Active Substance: DIAZEPAM
  11. TEMAZEPAM. [Suspect]
     Active Substance: TEMAZEPAM
     Dosage: 15MG

REACTIONS (5)
  - Nerve injury [Unknown]
  - Neuralgia [Unknown]
  - Crohn^s disease [Unknown]
  - Spinal fracture [Unknown]
  - Fall [Unknown]
